FAERS Safety Report 8797815 (Version 2)
Quarter: 2013Q1

REPORT INFORMATION
  Report Type: Report from Study
  Country: US (occurrence: US)
  Receive Date: 20120920
  Receipt Date: 20130308
  Transmission Date: 20140127
  Serious: Yes (Other)
  Sender: FDA-Public Use
  Company Number: US-009507513-1209TWN004506

PATIENT
  Age: 63 Year
  Sex: Male

DRUGS (10)
  1. TEMODAL [Suspect]
     Indication: GLIOBLASTOMA MULTIFORME
     Dosage: UNK
     Route: 048
     Dates: start: 20120312
  2. SPRYCEL [Suspect]
     Indication: GLIOBLASTOMA MULTIFORME
     Dosage: 3900 MG
     Dates: start: 20120312, end: 20120731
  3. DAPSONE [Suspect]
     Indication: PROPHYLAXIS
     Dosage: 1 DF, QD
     Route: 048
  4. DOCUSATE SODIUM [Concomitant]
     Indication: CONSTIPATION
     Dosage: 100 MG, BID, AS NEEDED
     Route: 048
  5. ONDANSETRON [Concomitant]
     Dosage: 8 MG, UNK
     Route: 048
  6. BACTRIM [Concomitant]
     Dosage: 80-400 MG , DAILY
     Route: 048
  7. MIRALAX [Concomitant]
     Dosage: 1 DF, QD
  8. PENTAMIDINE ISETHIONATE [Concomitant]
  9. PRILOSEC [Concomitant]
  10. DEXAMETHASONE [Concomitant]

REACTIONS (5)
  - Neutrophil count decreased [Recovering/Resolving]
  - Platelet count decreased [Recovering/Resolving]
  - White blood cell count decreased [Recovering/Resolving]
  - Anaemia [Recovering/Resolving]
  - Transfusion [Unknown]
